FAERS Safety Report 8943870 (Version 1)
Quarter: 2012Q4

REPORT INFORMATION
  Report Type: Report from Study
  Country: KR (occurrence: KR)
  Receive Date: 20121204
  Receipt Date: 20121204
  Transmission Date: 20130627
  Serious: Yes (Hospitalization)
  Sender: FDA-Public Use
  Company Number: KR-SANOFI-AVENTIS-2012SA086929

PATIENT
  Age: 50 Year
  Sex: Female
  Weight: 68 kg

DRUGS (16)
  1. DOCETAXEL [Suspect]
     Indication: HER-2 POSITIVE BREAST CANCER
     Dosage: form: vials; dose level: 60 mg/m2
     Route: 042
     Dates: start: 20100128
  2. DOCETAXEL [Suspect]
     Indication: HER-2 POSITIVE BREAST CANCER
     Dosage: form: vials; dose level: 60 mg/m2
     Route: 042
     Dates: start: 20100128
  3. TRASTUZUMAB [Suspect]
     Indication: HER-2 POSITIVE BREAST CANCER
     Dosage: form: vials; loading dose
     Route: 042
     Dates: start: 20100128, end: 20100128
  4. TRASTUZUMAB [Suspect]
     Indication: HER-2 POSITIVE BREAST CANCER
     Dosage: form: vials; dose level: 6 mg/kg; maintenance dose
     Route: 042
     Dates: start: 20100218
  5. BEVACIZUMAB [Suspect]
     Indication: HER-2 POSITIVE BREAST CANCER
     Dosage: form: vials; dose level: 15 mg/kg
     Route: 042
     Dates: start: 20100128
  6. CARBOPLATIN [Suspect]
     Indication: HER-2 POSITIVE BREAST CANCER
     Dosage: form: vials; dose level: 5 AUC
     Route: 042
     Dates: start: 20100128
  7. LEXAPRO [Concomitant]
     Dates: start: 20100317, end: 20100421
  8. XANAX [Concomitant]
     Dates: start: 20100317, end: 20100421
  9. METOCLOPRAMIDE HYDROCHLORIDE [Concomitant]
     Dates: start: 20100128, end: 20100421
  10. METOCLOPRAMIDE HYDROCHLORIDE [Concomitant]
     Dates: start: 20100529
  11. TAGAMET [Concomitant]
     Dates: start: 20100128, end: 20100421
  12. TAGAMET [Concomitant]
     Dates: start: 20100529
  13. DIAZEPAM [Concomitant]
     Dates: start: 20100128, end: 20100421
  14. PARIET [Concomitant]
     Dates: start: 20100208, end: 20100421
  15. PARIET [Concomitant]
     Dates: start: 20100529
  16. JANUMET [Concomitant]
     Dates: start: 20100526

REACTIONS (1)
  - Haemorrhoids [Recovered/Resolved with Sequelae]
